FAERS Safety Report 24416549 (Version 1)
Quarter: 2024Q4

REPORT INFORMATION
  Report Type: Spontaneous
  Country: AT (occurrence: AT)
  Receive Date: 20241009
  Receipt Date: 20241009
  Transmission Date: 20250115
  Serious: Yes (Death)
  Sender: JOHNSON AND JOHNSON
  Company Number: AT-JNJFOC-20241017965

PATIENT
  Sex: Male

DRUGS (1)
  1. TECVAYLI [Suspect]
     Active Substance: TECLISTAMAB-CQYV
     Indication: Primary amyloidosis
     Route: 048

REACTIONS (3)
  - Cardiac failure [Fatal]
  - Cardiac amyloidosis [Fatal]
  - Off label use [Unknown]
